FAERS Safety Report 8112010-1 (Version None)
Quarter: 2012Q1

REPORT INFORMATION
  Report Type: 
  Country: None (occurrence: None)
  Receive Date: 20120203
  Receipt Date: 20120123
  Transmission Date: 20120608
  Serious: Yes (Other)
  Sender: FDA-Public Use
  Company Number: CA-JNJFOC-20120200438

PATIENT
  Sex: Female
  Weight: 99.8 kg

DRUGS (8)
  1. IMURAN [Concomitant]
     Indication: CROHN'S DISEASE
     Route: 048
     Dates: start: 20040101
  2. METFORMIN HCL [Concomitant]
     Indication: DIABETES MELLITUS
     Route: 048
     Dates: start: 20090101
  3. CYMBALTA [Concomitant]
     Indication: DEPRESSION
     Route: 048
     Dates: start: 20090101
  4. OXYCONTIN [Concomitant]
     Dosage: 20 MG THREE TIMES DAILY AS NEEDED
     Route: 048
  5. NEXIUM [Concomitant]
     Indication: GASTROOESOPHAGEAL REFLUX DISEASE
     Route: 048
     Dates: start: 20090101
  6. ATENOLOL [Concomitant]
     Indication: HYPERTENSION
     Route: 048
     Dates: start: 20100101
  7. PERCOCET [Concomitant]
     Dosage: 2 TABLETS TWICE DAILY TO THREE TIMES DAILY AS NEEDED.
     Route: 048
  8. REMICADE [Suspect]
     Indication: CROHN'S DISEASE
     Route: 042
     Dates: start: 20090101

REACTIONS (4)
  - RIB FRACTURE [None]
  - ABDOMINAL DISTENSION [None]
  - UPPER RESPIRATORY TRACT INFECTION [None]
  - CONSTIPATION [None]
